FAERS Safety Report 18721860 (Version 2)
Quarter: 2021Q1

REPORT INFORMATION
  Report Type: Spontaneous
  Country: US (occurrence: US)
  Receive Date: 20210111
  Receipt Date: 20210204
  Transmission Date: 20210419
  Serious: No
  Sender: FDA-Public Use
  Company Number: US-BIOGEN-2021BI00965880

PATIENT
  Sex: Female

DRUGS (13)
  1. PROAIR HFA [Concomitant]
     Active Substance: ALBUTEROL SULFATE
     Indication: DYSPNOEA
     Dosage: 90 MCG/ACTUATION INHALER, INHALE 2 PUFFS EVERY 4 (FOUR) HOURS IF NEEDED FOR WHEE. ZING OR SHORTNE...
     Route: 065
  2. SYNALAR [Concomitant]
     Active Substance: FLUOCINOLONE ACETONIDE
     Dosage: 01 PERCENT EXTERNAL SOLUTION,APPLY TOPICALLY 2 (TWO) TIMES A DAY
     Route: 061
  3. TECFIDERA [Suspect]
     Active Substance: DIMETHYL FUMARATE
     Indication: MULTIPLE SCLEROSIS
     Route: 065
     Dates: start: 20140206
  4. IBUPROFEN. [Concomitant]
     Active Substance: IBUPROFEN
     Dosage: 800 MG TABLET, TAKE 1 TABLET (800 MG TOTAL) BY MOUTH 2 (TWO) TIMES A DAY. TAKE 1 TAB BY ORAL ROUT...
     Route: 048
  5. COMBIVENT RESPIMAT [Concomitant]
     Active Substance: ALBUTEROL SULFATE\IPRATROPIUM BROMIDE
     Dosage: 20?100 MCG/ACTUATION INHALER, INHALE 1 PUFF BY INHALATION ROUTE 4 TIMES EVERY DAY
     Route: 065
  6. ZOCOR [Concomitant]
     Active Substance: SIMVASTATIN
     Dosage: 1O MG TABLET, TAKE 1 TABLET (1O MG TOTAL) BY MOUTH AT BEDTIME
     Route: 048
  7. ZYRTEC [Concomitant]
     Active Substance: CETIRIZINE HYDROCHLORIDE
     Dosage: 10 MG TABLET, TAKE 130 MG BY MOUTH 2 (TWO) TIMES A DAY
     Route: 048
  8. CYANOCOBALAMIN. [Concomitant]
     Active Substance: CYANOCOBALAMIN
     Dosage: 1,000 MCG TABLET, TAKE 1,000 MCG BY MOUTH 1(ONE) TIME EACH DAY
     Route: 048
  9. VENLAFAXINE XR [Concomitant]
     Active Substance: VENLAFAXINE HYDROCHLORIDE
     Dosage: 75 MG/150 MG 24 HR CAPSULE1 TAKE 1 CAPSULE (75 MG TOTAL) BY MOUTH 1 (ONE) TIME EACH DAY.
     Route: 048
  10. ASCORBIC ACID. [Concomitant]
     Active Substance: ASCORBIC ACID
     Dosage: 1,000 MG TABLET, TAKE 1,000 MG BY MOUTH 1 (ONE) TIME EACH DAY
     Route: 048
  11. METFORMIN [Concomitant]
     Active Substance: METFORMIN HYDROCHLORIDE
     Dosage: 500 MG TABLET, TAKE 1 TABLET (500 MG TOTAL) BY MOUTH 2 (TWO) TIMES A DAY WITH MEALS., DISP: 180 T...
     Route: 048
  12. AMBIEN [Concomitant]
     Active Substance: ZOLPIDEM TARTRATE
     Indication: SLEEP DISORDER
     Dosage: 10 MG TABLET, TAKE 1 TABLET (10.MG TOTAL) BY MOUTH AT BEDTIME AS NEEDED FOR SLEEP
     Route: 048
  13. CHOLECALCIFEROL [Concomitant]
     Active Substance: CHOLECALCIFEROL
     Dosage: 10 MCG (400 UNIT) CAPSULE, TAKE 400 UNITS BY MOUTH 1 (ONE) TIME EACH DAY
     Route: 048

REACTIONS (1)
  - Multiple allergies [Unknown]
